FAERS Safety Report 7527059-7 (Version None)
Quarter: 2011Q2

REPORT INFORMATION
  Report Type: 
  Country: None (occurrence: None)
  Receive Date: 20110606
  Receipt Date: 20110601
  Transmission Date: 20111010
  Serious: Yes (Congenital Anomaly, Other)
  Sender: FDA-Public Use
  Company Number: US-ABBOTT-10P-163-0693876-00

PATIENT
  Sex: Female

DRUGS (3)
  1. KALETRA [Suspect]
     Indication: DRUG EXPOSURE DURING PREGNANCY
     Route: 064
  2. ATRIPLA [Suspect]
     Indication: DRUG EXPOSURE DURING PREGNANCY
     Route: 064
  3. COMBIVIR [Suspect]
     Indication: DRUG EXPOSURE DURING PREGNANCY
     Route: 064

REACTIONS (3)
  - PYELOCALIECTASIS [None]
  - DRUG EXPOSURE DURING PREGNANCY [None]
  - CONGENITAL CHOROID PLEXUS CYST [None]
